FAERS Safety Report 23274410 (Version 3)
Quarter: 2024Q1

REPORT INFORMATION
  Report Type: Spontaneous
  Country: JP (occurrence: None)
  Receive Date: 20231208
  Receipt Date: 20240117
  Transmission Date: 20240410
  Serious: Yes (Hospitalization, Disabling)
  Sender: FDA-Public Use
  Company Number: 2023A275676

PATIENT
  Age: 73 Year
  Sex: Male

DRUGS (5)
  1. ONDEXXYA [Suspect]
     Active Substance: ANDEXANET ALFA
     Dosage: 800 MG (30 MG/MIN FOR 2 HOURS) FOLLOWED BY 960 MG (8 MG/MIN FOR 2 HOURS)
     Route: 042
     Dates: start: 20231129, end: 20231129
  2. EDOXABAN TOSYLATE [Concomitant]
     Active Substance: EDOXABAN TOSYLATE
     Dosage: DOSE UNKNOWN
     Route: 048
     Dates: start: 20230220
  3. PRAVASTATIN SODIUM [Concomitant]
     Active Substance: PRAVASTATIN SODIUM
  4. ESOMEPRAZOLE [Concomitant]
     Active Substance: ESOMEPRAZOLE
  5. TSUMURA HACHIMIJIOGAN EXTRACT GRANULES FOR ETHICAL USE [Concomitant]

REACTIONS (2)
  - Cerebral infarction [Recovered/Resolved]
  - Blood pressure decreased [Unknown]

NARRATIVE: CASE EVENT DATE: 20230101
